FAERS Safety Report 11593401 (Version 1)
Quarter: 2015Q4

REPORT INFORMATION
  Report Type: Report from Study
  Country: DE (occurrence: DE)
  Receive Date: 20151005
  Receipt Date: 20151005
  Transmission Date: 20160304
  Serious: Yes (Hospitalization, Other)
  Sender: FDA-Public Use
  Company Number: DE-ABBVIE-15K-062-1471008-00

PATIENT
  Age: 66 Year
  Sex: Male

DRUGS (11)
  1. FOLCUR [Concomitant]
     Indication: PRODUCT USED FOR UNKNOWN INDICATION
  2. CLOPIDOGREL [Concomitant]
     Active Substance: CLOPIDOGREL BISULFATE
     Indication: PRODUCT USED FOR UNKNOWN INDICATION
     Dates: end: 201405
  3. SALOFALK [Concomitant]
     Active Substance: MESALAMINE
     Indication: PRODUCT USED FOR UNKNOWN INDICATION
  4. NOVAMINSULFON [Concomitant]
     Active Substance: METAMIZOLE
     Indication: PRODUCT USED FOR UNKNOWN INDICATION
     Dosage: 2 IN 1 DAY AS REQUIRED
  5. ALLOPURINOL. [Concomitant]
     Active Substance: ALLOPURINOL
     Indication: PRODUCT USED FOR UNKNOWN INDICATION
     Dates: end: 2015
  6. MEZAVANT [Concomitant]
     Active Substance: MESALAMINE
     Indication: PRODUCT USED FOR UNKNOWN INDICATION
     Dates: start: 201204
  7. ASPIRIN. [Concomitant]
     Active Substance: ASPIRIN
     Indication: PRODUCT USED FOR UNKNOWN INDICATION
  8. HUMIRA [Suspect]
     Active Substance: ADALIMUMAB
     Indication: RHEUMATOID ARTHRITIS
     Route: 058
     Dates: start: 20130808, end: 201506
  9. ALLOPURINOL. [Concomitant]
     Active Substance: ALLOPURINOL
     Dates: start: 2015
  10. SALOFALK [Concomitant]
     Active Substance: MESALAMINE
  11. MEZAVANT [Concomitant]
     Active Substance: MESALAMINE
     Dosage: 0-2-1

REACTIONS (19)
  - Speech disorder [Unknown]
  - Mobility decreased [Unknown]
  - Hyperhidrosis [Recovering/Resolving]
  - Arthralgia [Unknown]
  - Multiple sclerosis [Unknown]
  - Blood albumin abnormal [Unknown]
  - Central nervous system inflammation [Unknown]
  - CSF oligoclonal band present [Unknown]
  - Colitis ulcerative [Unknown]
  - Iron deficiency anaemia [Unknown]
  - Pain [Unknown]
  - Fatigue [Recovering/Resolving]
  - Dyspnoea [Recovering/Resolving]
  - Cervicitis [Unknown]
  - Pseudopolyp [Unknown]
  - Muscle spasms [Unknown]
  - Paraesthesia [Unknown]
  - Osteochondrosis [Unknown]
  - Blood brain barrier defect [Unknown]

NARRATIVE: CASE EVENT DATE: 2013
